FAERS Safety Report 26131733 (Version 1)
Quarter: 2025Q4

REPORT INFORMATION
  Report Type: Spontaneous
  Country: US (occurrence: None)
  Receive Date: 20251208
  Receipt Date: 20251208
  Transmission Date: 20260118
  Serious: No
  Sender: FDA-CTU
  Company Number: None

PATIENT

DRUGS (2)
  1. BENZONATATE [Suspect]
     Active Substance: BENZONATATE
  2. OMEGA-3-ACID ETHYL ESTER [Suspect]
     Active Substance: OMEGA-3-ACID ETHYL ESTERS

REACTIONS (3)
  - Product packaging confusion [None]
  - Product appearance confusion [None]
  - Product label confusion [None]
